FAERS Safety Report 17036683 (Version 1)
Quarter: 2019Q4

REPORT INFORMATION
  Report Type: Spontaneous
  Country: GB (occurrence: GB)
  Receive Date: 20191115
  Receipt Date: 20191115
  Transmission Date: 20200122
  Serious: Yes (Hospitalization, Other)
  Sender: FDA-Public Use
  Company Number: GB-PFIZER INC-2019490972

PATIENT
  Age: 79 Year
  Sex: Male

DRUGS (8)
  1. WARFARIN [Concomitant]
     Active Substance: WARFARIN
     Dosage: UNK
  2. CEFALEXIN [Concomitant]
     Active Substance: CEPHALEXIN
     Dosage: 250 MG, UNK
     Dates: start: 20180706
  3. ATORVASTATIN [Concomitant]
     Active Substance: ATORVASTATIN
     Dosage: 20 MG, 1X/DAY (NIGHT)
  4. LISINOPRIL. [Suspect]
     Active Substance: LISINOPRIL
     Indication: CARDIAC FAILURE CONGESTIVE
     Dosage: 10 MG, 1X/DAY
     Route: 048
  5. BISOPROLOL [Concomitant]
     Active Substance: BISOPROLOL
     Dosage: 10 MG, 1X/DAY
  6. LANSOPRAZOLE. [Concomitant]
     Active Substance: LANSOPRAZOLE
     Dosage: 30 MG, 1X/DAY
  7. EPLERENONE. [Suspect]
     Active Substance: EPLERENONE
     Dosage: 25 MG, 1X/DAY
     Route: 048
     Dates: end: 20180717
  8. BUMETANIDE. [Suspect]
     Active Substance: BUMETANIDE
     Indication: CARDIAC FAILURE CONGESTIVE
     Dosage: 2 MG, 1X/DAY (1MG MORNING AND LUNCHTIME)
     Route: 048

REACTIONS (4)
  - Dizziness [Unknown]
  - Acute kidney injury [Recovered/Resolved]
  - Blood potassium increased [Unknown]
  - Chest pain [Unknown]

NARRATIVE: CASE EVENT DATE: 20180715
